FAERS Safety Report 9203253 (Version 2)
Quarter: 2013Q2

REPORT INFORMATION
  Report Type: Spontaneous
  Country: US (occurrence: US)
  Receive Date: 20130402
  Receipt Date: 20130415
  Transmission Date: 20140414
  Serious: Yes (Hospitalization, Other)
  Sender: FDA-Public Use
  Company Number: US-ACCORD-016982

PATIENT
  Age: 80 Year
  Sex: Male
  Weight: 138.18 kg

DRUGS (14)
  1. GEMCITABINE [Suspect]
     Indication: LUNG NEOPLASM MALIGNANT
     Route: 042
     Dates: start: 20130211, end: 20130214
  2. LASIX [Concomitant]
  3. ZYLOPRIM [Concomitant]
  4. PROVENTIL [Concomitant]
  5. LANTUS [Concomitant]
  6. PRILOSEC [Concomitant]
  7. ZOCOR [Concomitant]
  8. ASA [Concomitant]
  9. COREG [Concomitant]
  10. HYTRIN [Concomitant]
  11. NOVOLOG [Concomitant]
  12. RANEXA [Concomitant]
  13. SPIRIVA [Concomitant]
  14. IRON [Concomitant]

REACTIONS (4)
  - Pneumonia [Recovering/Resolving]
  - Asthenia [Recovering/Resolving]
  - Dehydration [Recovering/Resolving]
  - Oedema [Unknown]
